FAERS Safety Report 4930725-0 (Version None)
Quarter: 2006Q1

REPORT INFORMATION
  Report Type: 
  Country: None (occurrence: None)
  Receive Date: 20060227
  Receipt Date: 20050929
  Transmission Date: 20060701
  Serious: Yes (Hospitalization)
  Sender: FDA-Public Use
  Company Number: US-ELI_LILLY_AND_CO-US_0503114566

PATIENT
  Age: 56 Year
  Sex: Female

DRUGS (9)
  1. PERMAX [Suspect]
     Indication: PARKINSON'S DISEASE
     Dosage: SEE IMAGE
     Dates: start: 20020813, end: 20030101
  2. PERMAX [Suspect]
     Indication: PARKINSON'S DISEASE
     Dosage: SEE IMAGE
     Dates: start: 20020402
  3. PERMAX [Suspect]
     Indication: PARKINSON'S DISEASE
     Dosage: SEE IMAGE
     Dates: start: 20020514
  4. PERMAX [Suspect]
     Indication: PARKINSON'S DISEASE
     Dosage: SEE IMAGE
     Dates: start: 20020628
  5. HYDROCODONE [Concomitant]
  6. COGENTIN [Concomitant]
  7. LASIX [Concomitant]
  8. ELDEPRYL [Concomitant]
  9. ULTRAVATE [Concomitant]

REACTIONS (27)
  - ANXIETY [None]
  - AORTIC VALVE INCOMPETENCE [None]
  - AORTIC VALVE STENOSIS [None]
  - ARRHYTHMIA [None]
  - ARRHYTHMIA SUPRAVENTRICULAR [None]
  - ASTHENIA [None]
  - CARDIAC MURMUR [None]
  - CARDIAC VALVE DISEASE [None]
  - CELLULITIS [None]
  - CHEST PAIN [None]
  - DILATATION ATRIAL [None]
  - DIZZINESS [None]
  - DRUG TOXICITY [None]
  - DYSPNOEA [None]
  - FATIGUE [None]
  - HYPOKALAEMIA [None]
  - LOSS OF CONSCIOUSNESS [None]
  - LYMPHADENOPATHY [None]
  - LYMPHOEDEMA [None]
  - MITRAL VALVE INCOMPETENCE [None]
  - OEDEMA PERIPHERAL [None]
  - PAIN IN EXTREMITY [None]
  - PALPITATIONS [None]
  - PELVIC PAIN [None]
  - PULMONARY HYPERTENSION [None]
  - RHEUMATIC HEART DISEASE [None]
  - TRICUSPID VALVE INCOMPETENCE [None]
